FAERS Safety Report 12522920 (Version 1)
Quarter: 2016Q3

REPORT INFORMATION
  Report Type: Spontaneous
  Country: US (occurrence: US)
  Receive Date: 20160701
  Receipt Date: 20160701
  Transmission Date: 20161109
  Serious: Yes (Death)
  Sender: FDA-Public Use
  Company Number: US-SAOL THERAPEUTICS-2016SAO00020

PATIENT
  Sex: Male

DRUGS (6)
  1. COMPOUNDED BACLOFEN [Suspect]
     Active Substance: BACLOFEN
     Indication: PAIN
     Dosage: 24.8 ?G DAILY
  2. BUPIVACAINE. [Suspect]
     Active Substance: BUPIVACAINE
     Indication: POST LAMINECTOMY SYNDROME
  3. HYDROMORPHONE [Suspect]
     Active Substance: HYDROMORPHONE
     Indication: PAIN
     Dosage: 6.2 MG DAILY
  4. COMPOUNDED BACLOFEN [Suspect]
     Active Substance: BACLOFEN
     Indication: POST LAMINECTOMY SYNDROME
  5. BUPIVACAINE. [Suspect]
     Active Substance: BUPIVACAINE
     Indication: PAIN
     Dosage: 5 MG DAILY
  6. HYDROMORPHONE [Suspect]
     Active Substance: HYDROMORPHONE
     Indication: POST LAMINECTOMY SYNDROME

REACTIONS (1)
  - Neoplasm malignant [Fatal]
